FAERS Safety Report 12321300 (Version 2)
Quarter: 2017Q1

REPORT INFORMATION
  Report Type: Spontaneous
  Country: PE (occurrence: PE)
  Receive Date: 20160502
  Receipt Date: 20170214
  Transmission Date: 20170428
  Serious: Yes (Other)
  Sender: FDA-Public Use
  Company Number: PE-009507513-1604PER018329

PATIENT
  Age: 70 Year
  Sex: Female

DRUGS (5)
  1. IRBESARTAN. [Concomitant]
     Active Substance: IRBESARTAN
     Indication: HYPERTENSION
     Dosage: 150 MG, ONCE DAILY
     Route: 048
     Dates: start: 2015
  2. METFORMIN [Concomitant]
     Active Substance: METFORMIN HYDROCHLORIDE
     Indication: DIABETES MELLITUS
     Dosage: 425 MG, ONCE DAILY
     Route: 048
     Dates: start: 2015
  3. LEVOTHYROXINE SODIUM. [Concomitant]
     Active Substance: LEVOTHYROXINE SODIUM
     Indication: HYPOTHYROIDISM
     Dosage: 75 MG, ONCE DAILY
     Route: 048
     Dates: start: 2011
  4. DILTIAZEM. [Concomitant]
     Active Substance: DILTIAZEM
     Indication: HYPERTENSION
     Dosage: UNK, TWICE A DAY (BID)
     Route: 048
     Dates: start: 2015
  5. JANUMET [Suspect]
     Active Substance: METFORMIN HYDROCHLORIDE\SITAGLIPTIN PHOSPHATE
     Indication: DIABETES MELLITUS
     Dosage: 1 TABLET (50/1000 MG) ONCE DAILY
     Route: 048
     Dates: start: 2015

REACTIONS (10)
  - Heart rate increased [Recovered/Resolved]
  - Pneumonia bacterial [Recovered/Resolved]
  - Heat stroke [Recovered/Resolved]
  - Hyperhidrosis [Recovered/Resolved]
  - Tremor [Recovered/Resolved]
  - Blood glucose fluctuation [Recovered/Resolved]
  - Kidney infection [Unknown]
  - Dehydration [Recovered/Resolved]
  - Inappropriate schedule of drug administration [Unknown]
  - Urinary tract inflammation [Not Recovered/Not Resolved]

NARRATIVE: CASE EVENT DATE: 2015
